FAERS Safety Report 5394643-9 (Version None)
Quarter: 2007Q3

REPORT INFORMATION
  Report Type: 
  Country: None (occurrence: None)
  Receive Date: 20070723
  Receipt Date: 20070711
  Transmission Date: 20080115
  Serious: Yes (Hospitalization)
  Sender: FDA-Public Use
  Company Number: JP-PFIZER INC-2007051740

PATIENT
  Sex: Female
  Weight: 52.5 kg

DRUGS (13)
  1. ZOLOFT [Suspect]
     Indication: DEPRESSION
     Dosage: DAILY DOSE:100MG
     Route: 048
     Dates: start: 20070426, end: 20070617
  2. HALCION [Concomitant]
     Dosage: DAILY DOSE:.25MG
     Route: 048
     Dates: start: 20041124
  3. GRANDAXIN [Concomitant]
     Route: 048
  4. CONSTAN [Concomitant]
     Dosage: DAILY DOSE:.4MG
     Route: 048
     Dates: start: 20041124, end: 20070426
  5. LENDORM [Concomitant]
     Dosage: DAILY DOSE:.25MG
     Route: 048
  6. OMEPRAZOLE [Concomitant]
     Dosage: DAILY DOSE:10MG
     Route: 048
  7. ADALAT [Concomitant]
     Dosage: DAILY DOSE:20MG
     Route: 048
  8. TRICHLORMETHIAZIDE [Concomitant]
     Route: 048
  9. HERBAL PREPARATION [Concomitant]
     Route: 048
  10. HIRNAMIN [Concomitant]
     Route: 048
  11. NEULEPTIL [Concomitant]
     Route: 048
  12. SULPIRIDE [Concomitant]
     Route: 048
     Dates: start: 20041124, end: 20070426
  13. PAXIL [Concomitant]
     Route: 048
     Dates: start: 20041124, end: 20070426

REACTIONS (11)
  - APTYALISM [None]
  - DEPENDENCE [None]
  - DEPRESSION [None]
  - DRY MOUTH [None]
  - NASOPHARYNGITIS [None]
  - ORAL DISCOMFORT [None]
  - ORAL PAIN [None]
  - PARAESTHESIA ORAL [None]
  - REGRESSIVE BEHAVIOUR [None]
  - SPEECH DISORDER [None]
  - SPUTUM ABNORMAL [None]
